FAERS Safety Report 5417753-6 (Version None)
Quarter: 2007Q3

REPORT INFORMATION
  Report Type: 
  Country: None (occurrence: None)
  Receive Date: 20070817
  Receipt Date: 20070809
  Transmission Date: 20080115
  Serious: Yes (Other)
  Sender: FDA-Public Use
  Company Number: PHEH2007US11005

PATIENT

DRUGS (1)
  1. LAMISIL [Suspect]
     Dosage: UNK, UNK
     Dates: start: 20070407, end: 20070722

REACTIONS (2)
  - DIARRHOEA [None]
  - DIARRHOEA HAEMORRHAGIC [None]
